FAERS Safety Report 8828018 (Version 1)
Quarter: 2012Q4

REPORT INFORMATION
  Report Type: 
  Country: US (occurrence: US)
  Receive Date: 20121005
  Receipt Date: 20121005
  Transmission Date: 20130627
  Serious: Yes (Other)
  Sender: FDA-Public Use
  Company Number: US-BAYER-2012-100900

PATIENT
  Age: 74 Year
  Sex: Male

DRUGS (1)
  1. NEXAVAR [Suspect]
     Dosage: Daily dose 800 mg
     Route: 048
     Dates: start: 20120917, end: 20120924

REACTIONS (3)
  - Rash erythematous [Recovering/Resolving]
  - Swelling face [Recovering/Resolving]
  - Pruritus [Recovered/Resolved]
